FAERS Safety Report 8949913 (Version 1)
Quarter: 2012Q4

REPORT INFORMATION
  Report Type: 
  Country: US (occurrence: US)
  Receive Date: 20121205
  Receipt Date: 20121205
  Transmission Date: 20130627
  Serious: No
  Sender: FDA-Public Use
  Company Number: US-009507513-1211USA012821

PATIENT
  Sex: Female

DRUGS (9)
  1. FOSAMAX [Suspect]
     Route: 048
  2. AFLURIA [Concomitant]
     Indication: PROPHYLAXIS
  3. VIACTIV MULTI-VITAMIN CHEWS [Concomitant]
     Dosage: 1 DF, bid
  4. CENTRUM SILVER [Concomitant]
     Dosage: 1 DF, qd
  5. ATENOLOL [Concomitant]
     Dosage: 1 DF, qd
     Route: 048
  6. SYNTHROID [Concomitant]
     Dosage: 1 DF, qd
     Route: 048
  7. ADVIL [Concomitant]
     Dosage: UNK, prn
     Route: 048
  8. SOMA [Concomitant]
     Dosage: 1 DF, tid
     Route: 048
  9. LYRICA [Concomitant]
     Dosage: 1 DF, qd
     Route: 048

REACTIONS (1)
  - Drug hypersensitivity [Unknown]
